FAERS Safety Report 12697587 (Version 1)
Quarter: 2016Q3

REPORT INFORMATION
  Report Type: Spontaneous
  Country: VE (occurrence: VE)
  Receive Date: 20160830
  Receipt Date: 20160830
  Transmission Date: 20161109
  Serious: Yes (Hospitalization, Other)
  Sender: FDA-Public Use
  Company Number: PHHY2016VE118167

PATIENT
  Sex: Female

DRUGS (8)
  1. TRILEPTAL [Suspect]
     Active Substance: OXCARBAZEPINE
     Indication: CEREBRAL DISORDER
     Dosage: UNK UNK, QD
     Route: 048
  2. TRILEPTAL [Suspect]
     Active Substance: OXCARBAZEPINE
     Indication: SEIZURE
  3. TEGRETOL [Suspect]
     Active Substance: CARBAMAZEPINE
     Indication: CEREBRAL DISORDER
     Route: 065
  4. TRILEPTAL [Suspect]
     Active Substance: OXCARBAZEPINE
     Indication: SEIZURE
     Dosage: 900 MG, QD (600 MG IN THE MORNING AND 300 MG IN THE NIGHT)
     Route: 048
  5. TEGRETOL [Suspect]
     Active Substance: CARBAMAZEPINE
     Indication: SEIZURE
  6. TRILEPTAL [Suspect]
     Active Substance: OXCARBAZEPINE
     Indication: CEREBRAL DISORDER
     Dosage: 1200 MG, QD (STRENGTH: 600 MG)
     Route: 048
  7. OXICODAL [Suspect]
     Active Substance: OXCARBAZEPINE
     Indication: CEREBRAL DISORDER
     Dosage: 1200 MG, QD (600 MG OR 1200 MG A DAY)
     Route: 065
  8. OXICODAL [Suspect]
     Active Substance: OXCARBAZEPINE
     Indication: SEIZURE

REACTIONS (11)
  - Eyelid injury [Recovering/Resolving]
  - Product use issue [Unknown]
  - Eye injury [Recovering/Resolving]
  - Mouth injury [Recovering/Resolving]
  - Head injury [Recovering/Resolving]
  - Oral mucosal blistering [Recovering/Resolving]
  - Face injury [Recovering/Resolving]
  - Seizure [Recovering/Resolving]
  - Drug dependence [Unknown]
  - Oral discomfort [Recovering/Resolving]
  - Drug ineffective [Unknown]
